FAERS Safety Report 4399261-7 (Version None)
Quarter: 2004Q3

REPORT INFORMATION
  Report Type: 
  Country: None (occurrence: None)
  Receive Date: 20040712
  Receipt Date: 20040630
  Transmission Date: 20050211
  Serious: Yes (Other)
  Sender: FDA-Public Use
  Company Number: US-2004-027953

PATIENT
  Sex: Female

DRUGS (1)
  1. MIRENA [Suspect]
     Dosage: 20 UG/DAY, CONT, INTRA-UTERINE
     Route: 015

REACTIONS (4)
  - ABDOMINAL DISTENSION [None]
  - DIARRHOEA [None]
  - FEELING ABNORMAL [None]
  - UTERINE LEIOMYOMA [None]
